FAERS Safety Report 5500623-2 (Version None)
Quarter: 2007Q4

REPORT INFORMATION
  Report Type: 
  Country: None (occurrence: None)
  Receive Date: 20071018
  Receipt Date: 20061207
  Transmission Date: 20080405
  Serious: Yes (Other)
  Sender: FDA-Public Use
  Company Number: 2006150593

PATIENT
  Sex: Female
  Weight: 88.5 kg

DRUGS (4)
  1. NEURONTIN [Suspect]
     Indication: MIGRAINE
     Dates: start: 20030101, end: 20030101
  2. XANAX [Concomitant]
  3. ARTHROTEC [Concomitant]
  4. ALL OTHER THERAPEUTIC PRODUCTS (ALL OTHER THERAPEUTIC PRODUCTS) [Concomitant]

REACTIONS (2)
  - CONVULSION [None]
  - TREMOR [None]
